FAERS Safety Report 6184749-9 (Version None)
Quarter: 2009Q2

REPORT INFORMATION
  Report Type: 
  Country: None (occurrence: None)
  Receive Date: 20090508
  Receipt Date: 20090501
  Transmission Date: 20091009
  Serious: Yes (Hospitalization)
  Sender: FDA-Public Use
  Company Number: PHEH2009US01490

PATIENT
  Sex: Male

DRUGS (7)
  1. RITALIN [Interacting]
     Indication: ATTENTION DEFICIT/HYPERACTIVITY DISORDER
     Dosage: UNK, UNK
     Dates: start: 20051112
  2. LEXAPRO [Interacting]
     Indication: DEPRESSION
     Dosage: 10 MG DAILY
     Route: 048
     Dates: start: 20080601, end: 20080901
  3. LEXAPRO [Interacting]
     Dosage: 20MG DAILY
     Route: 048
     Dates: start: 20080901, end: 20081010
  4. CLONAZEPAM [Suspect]
     Indication: ANXIETY
     Dosage: 0.5 MG, QID
  5. INDERAL [Concomitant]
     Dosage: UNK
  6. LOTENSIN [Concomitant]
     Dosage: UNK
  7. ALLEGRA D 24 HOUR [Concomitant]

REACTIONS (3)
  - DRUG INTERACTION [None]
  - DYSARTHRIA [None]
  - HYPERTENSION [None]
